FAERS Safety Report 21873719 (Version 1)
Quarter: 2023Q1

REPORT INFORMATION
  Report Type: Spontaneous
  Country: DE (occurrence: DE)
  Receive Date: 20230117
  Receipt Date: 20230117
  Transmission Date: 20230418
  Serious: Yes (Hospitalization, Other)
  Sender: FDA-Public Use
  Company Number: DE-002147023-NVSC2022DE264189

PATIENT
  Age: 93 Year
  Sex: Female
  Weight: 69.2 kg

DRUGS (12)
  1. ALLOPURINOL [Suspect]
     Active Substance: ALLOPURINOL
     Indication: Product used for unknown indication
     Dosage: 1 DOSAGE FORM, QD (1-0-0-0) (STRENGTH: 100 UNITS NOT SPECIFIED)
     Route: 065
  2. AMLODIPINE MALEATE [Suspect]
     Active Substance: AMLODIPINE MALEATE
     Indication: Product used for unknown indication
     Dosage: 1 DOSAGE FORM, QD (0-0-1-0)
     Route: 065
  3. PANTOPRAZOLE SODIUM [Suspect]
     Active Substance: PANTOPRAZOLE SODIUM
     Indication: Product used for unknown indication
     Dosage: 1 DOSAGE FORM, QD (1-0-0-0)
     Route: 065
  4. LEVOTHYROXINE SODIUM [Suspect]
     Active Substance: LEVOTHYROXINE SODIUM
     Indication: Hypothyroidism
     Dosage: 1 DOSAGE FORM, QD (1-0-0-0) (STRENGTH: 100)
     Route: 065
  5. BISOPROLOL FUMARATE [Suspect]
     Active Substance: BISOPROLOL FUMARATE
     Indication: Product used for unknown indication
     Dosage: 1.5 DOSAGE FORM, PRN (1-0-HALF)
     Route: 065
  6. SIMVASTATIN [Suspect]
     Active Substance: SIMVASTATIN
     Indication: Product used for unknown indication
     Dosage: 1 DOSAGE FORM, QHS (0-0-0-1)
     Route: 065
  7. XARELTO [Suspect]
     Active Substance: RIVAROXABAN
     Indication: Atrial fibrillation
     Dosage: 1 DOSAGE FORM, QD (1-0-0-0)
     Route: 065
  8. CHOLECALCIFEROL [Suspect]
     Active Substance: CHOLECALCIFEROL
     Indication: Product used for unknown indication
     Dosage: UNK, QW (20.000 I.E. )
     Route: 065
  9. CANDESARTAN CILEXETIL [Suspect]
     Active Substance: CANDESARTAN CILEXETIL
     Indication: Product used for unknown indication
     Dosage: 1 DOSAGE FORM, QD (0-0-1-0)
     Route: 065
  10. TORSEMIDE [Suspect]
     Active Substance: TORSEMIDE
     Indication: Product used for unknown indication
     Dosage: 1 DOSAGE FORM, QD (1-0-0-0)
     Route: 048
     Dates: end: 20221014
  11. DIETARY SUPPLEMENT [Suspect]
     Active Substance: DIETARY SUPPLEMENT
     Indication: Product used for unknown indication
     Dosage: UNK (1-0-(1)-0)
     Route: 065
  12. DIGITOXIN [Concomitant]
     Active Substance: DIGITOXIN
     Indication: Product used for unknown indication
     Dosage: UNK
     Route: 065

REACTIONS (23)
  - Fall [Unknown]
  - Tricuspid valve incompetence [Unknown]
  - Mitral valve incompetence [Unknown]
  - Gastrointestinal necrosis [Unknown]
  - Degenerative aortic valve disease [Unknown]
  - Femoral hernia incarcerated [Unknown]
  - Syncope [Recovered/Resolved]
  - Aortic occlusion [Unknown]
  - Hypothyroidism [Unknown]
  - Hypertensive crisis [Unknown]
  - Carotid artery occlusion [Unknown]
  - Atrial fibrillation [Unknown]
  - Bradycardia [Unknown]
  - Bundle branch block right [Unknown]
  - Head injury [Unknown]
  - Joint injury [Unknown]
  - Hypertension [Unknown]
  - Gliosis [Unknown]
  - Hyperuricaemia [Unknown]
  - Pain [Recovering/Resolving]
  - Dehydration [Unknown]
  - Contusion [Unknown]
  - Microangiopathy [Unknown]

NARRATIVE: CASE EVENT DATE: 20170701
